FAERS Safety Report 7955283-8 (Version None)
Quarter: 2011Q4

REPORT INFORMATION
  Report Type: 
  Country: None (occurrence: None)
  Receive Date: 20111202
  Receipt Date: 20111121
  Transmission Date: 20120403
  Serious: Yes (Hospitalization)
  Sender: FDA-Public Use
  Company Number: BR-COVIDIEN/TYCO HEALTHCARE/MALLINCKRODT-T201102724

PATIENT
  Age: 51 Year
  Sex: Male

DRUGS (1)
  1. CONRAY [Suspect]
     Indication: COMPUTERISED TOMOGRAM
     Dosage: 120 ML, SINGLE
     Route: 042
     Dates: start: 20111105, end: 20111105

REACTIONS (6)
  - ERYTHEMA [None]
  - DYSPNOEA [None]
  - TACHYCARDIA [None]
  - TREMOR [None]
  - VOMITING [None]
  - LOCALISED OEDEMA [None]
